FAERS Safety Report 21915984 (Version 1)
Quarter: 2023Q1

REPORT INFORMATION
  Report Type: Spontaneous
  Country: US (occurrence: None)
  Receive Date: 20230125
  Receipt Date: 20230125
  Transmission Date: 20230417
  Serious: No
  Sender: FDA-Public Use
  Company Number: None

PATIENT
  Age: 51 Year
  Sex: Male

DRUGS (3)
  1. JAKAFI [Suspect]
     Active Substance: RUXOLITINIB
     Dosage: FREQUENCY : TWICE A DAY;?
     Route: 048
     Dates: start: 20221205
  2. HYDROXYUREA [Concomitant]
     Active Substance: HYDROXYUREA
     Dates: start: 20221201
  3. ENTYVIO [Concomitant]
     Active Substance: VEDOLIZUMAB
     Dates: start: 20221201

REACTIONS (1)
  - Blood glucose increased [None]

NARRATIVE: CASE EVENT DATE: 20230125
